FAERS Safety Report 9523625 (Version 2)
Quarter: 2014Q2

REPORT INFORMATION
  Report Type: Spontaneous
  Country: CO (occurrence: CO)
  Receive Date: 20130913
  Receipt Date: 20140604
  Transmission Date: 20141212
  Serious: Yes (Other)
  Sender: FDA-Public Use
  Company Number: CO-PFIZER INC-2013261350

PATIENT
  Age: 7 Year
  Sex: Female
  Weight: 21 kg

DRUGS (2)
  1. GENOTROPIN [Suspect]
     Indication: GROWTH HORMONE DEFICIENCY
     Dosage: 0.4 MG, 1X/DAY
     Route: 058
     Dates: start: 201203, end: 201402
  2. GENOTROPIN [Suspect]
     Indication: BODY HEIGHT BELOW NORMAL

REACTIONS (3)
  - Multiple sclerosis [Not Recovered/Not Resolved]
  - Patent ductus arteriosus [Not Recovered/Not Resolved]
  - Scoliosis [Not Recovered/Not Resolved]
